FAERS Safety Report 10404534 (Version 1)
Quarter: 2014Q2

REPORT INFORMATION
  Report Type: Spontaneous
  Country: US (occurrence: None)
  Receive Date: 20140514
  Receipt Date: 20140514
  Transmission Date: 20141212
  Serious: Yes (Hospitalization, Other)
  Sender: FDA-Public Use
  Company Number: 089810

PATIENT
  Sex: Female
  Weight: 81.6 kg

DRUGS (5)
  1. CIMZIA [Suspect]
     Indication: CROHN^S DISEASE
     Dosage: (400MG 1X/MONTH)?(11/??/2012  TO ??/??/2013)
  2. SYNTHROID [Concomitant]
  3. VITAMIN B 12 LICHTENSTEIN [Concomitant]
  4. AVIANE [Concomitant]
  5. PAXIL [Concomitant]

REACTIONS (1)
  - Crohn^s disease [None]
